FAERS Safety Report 12760951 (Version 1)
Quarter: 2016Q3

REPORT INFORMATION
  Report Type: Spontaneous
  Country: US (occurrence: US)
  Receive Date: 20160919
  Receipt Date: 20160919
  Transmission Date: 20161109
  Serious: Yes (Disabling, Other)
  Sender: FDA-Public Use
  Company Number: US-ASTRAZENECA-2016SE97276

PATIENT
  Sex: Female
  Weight: 141.1 kg

DRUGS (7)
  1. VITAMINS [Concomitant]
     Active Substance: VITAMINS
  2. BYETTA [Suspect]
     Active Substance: EXENATIDE
     Indication: TYPE 2 DIABETES MELLITUS
     Route: 058
  3. ACTOS [Concomitant]
     Active Substance: PIOGLITAZONE HYDROCHLORIDE
  4. GLIMEPIRIDE. [Concomitant]
     Active Substance: GLIMEPIRIDE
  5. GLUMETZA [Concomitant]
     Active Substance: METFORMIN HYDROCHLORIDE
  6. BYETTA [Suspect]
     Active Substance: EXENATIDE
     Indication: TYPE 2 DIABETES MELLITUS
     Dosage: 10
     Route: 058
  7. CRESTOR [Suspect]
     Active Substance: ROSUVASTATIN CALCIUM
     Indication: TYPE 2 DIABETES MELLITUS
     Dosage: 10.0MG UNKNOWN
     Route: 048
     Dates: start: 2004

REACTIONS (15)
  - Musculoskeletal stiffness [Unknown]
  - Body height decreased [Unknown]
  - Muscle spasms [Unknown]
  - Blood glucose increased [Recovered/Resolved]
  - Blood glucose fluctuation [Unknown]
  - Rectal cancer [Recovered/Resolved]
  - Skin ulcer [Unknown]
  - Lymphoedema [Unknown]
  - Peripheral swelling [Unknown]
  - Fatigue [Unknown]
  - Nerve injury [Unknown]
  - Pain [Unknown]
  - Decreased appetite [Unknown]
  - Somnolence [Unknown]
  - Carpal tunnel syndrome [Unknown]
